FAERS Safety Report 5984141-3 (Version None)
Quarter: 2008Q4

REPORT INFORMATION
  Report Type: 
  Country: None (occurrence: None)
  Receive Date: 20081208
  Receipt Date: 20080311
  Transmission Date: 20090506
  Serious: No
  Sender: FDA-Public Use
  Company Number: US-AMGEN-KDL266743

PATIENT
  Sex: Female

DRUGS (1)
  1. ENBREL [Suspect]
     Indication: PSORIASIS
     Route: 058
     Dates: start: 20041215, end: 20080219

REACTIONS (3)
  - NASAL ULCER [None]
  - PSORIASIS [None]
  - STAPHYLOCOCCAL INFECTION [None]
